FAERS Safety Report 21947082 (Version 1)
Quarter: 2023Q1

REPORT INFORMATION
  Report Type: Report from Study
  Country: US (occurrence: US)
  Receive Date: 20230202
  Receipt Date: 20230202
  Transmission Date: 20230417
  Serious: Yes (Other)
  Sender: FDA-Public Use
  Company Number: US-JNJFOC-20230153226

PATIENT

DRUGS (1)
  1. TECLISTAMAB [Suspect]
     Active Substance: TECLISTAMAB
     Indication: Product used for unknown indication
     Route: 065
     Dates: start: 20220809

REACTIONS (4)
  - Toxicity to various agents [Unknown]
  - COVID-19 [Unknown]
  - Tremor [Unknown]
  - Time perception altered [Unknown]

NARRATIVE: CASE EVENT DATE: 20220917
